FAERS Safety Report 8100254-4 (Version None)
Quarter: 2012Q1

REPORT INFORMATION
  Report Type: 
  Country: None (occurrence: None)
  Receive Date: 20120131
  Receipt Date: 20120123
  Transmission Date: 20120608
  Serious: Yes (Hospitalization)
  Sender: FDA-Public Use
  Company Number: DE-B.I. PHARMACEUTICALS,INC./RIDGEFIELD-2012-DE-00217DE

PATIENT
  Sex: Male

DRUGS (4)
  1. SLEEPING PILLS [Suspect]
  2. NEUPRO [Suspect]
     Indication: RESTLESS LEGS SYNDROME
     Route: 062
  3. RESTEX [Suspect]
     Indication: RESTLESS LEGS SYNDROME
  4. PRAMIPEXOLE DIHYDROCHLORIDE [Suspect]
     Indication: RESTLESS LEGS SYNDROME

REACTIONS (5)
  - INSOMNIA [None]
  - MUSCLE SPASMS [None]
  - DRUG INEFFECTIVE [None]
  - CONVULSION [None]
  - RESTLESSNESS [None]
